FAERS Safety Report 4374200-3 (Version None)
Quarter: 2004Q2

REPORT INFORMATION
  Report Type: 
  Country: None (occurrence: None)
  Receive Date: 20040604
  Receipt Date: 20040526
  Transmission Date: 20050107
  Serious: Yes (Death)
  Sender: FDA-Public Use
  Company Number: US-JNJFOC-20040506323

PATIENT
  Age: 88 Year
  Sex: Male

DRUGS (5)
  1. REMINYL [Suspect]
     Indication: DEMENTIA ALZHEIMER'S TYPE
     Dosage: 12 MG, 2 IN 1 DAY, ORAL
     Route: 048
     Dates: start: 20030101, end: 20040425
  2. SYNTHROID [Concomitant]
  3. ASPIRIN [Concomitant]
  4. VITAMIN B12 + FOLIC ACID (CYANOCOBALAMIN) [Concomitant]
  5. GERITOL (GERITOL) [Concomitant]

REACTIONS (2)
  - CARDIAC FAILURE ACUTE [None]
  - CARDIO-RESPIRATORY ARREST [None]
